FAERS Safety Report 22975551 (Version 3)
Quarter: 2023Q4

REPORT INFORMATION
  Report Type: Report from Study
  Country: NL (occurrence: NL)
  Receive Date: 20230925
  Receipt Date: 20231222
  Transmission Date: 20240110
  Serious: Yes (Other)
  Sender: FDA-Public Use
  Company Number: NL-GILEAD-2023-0644650

PATIENT
  Age: 51 Year
  Sex: Female

DRUGS (1)
  1. SACITUZUMAB GOVITECAN-HZIY [Suspect]
     Active Substance: SACITUZUMAB GOVITECAN-HZIY
     Indication: Product used for unknown indication
     Dosage: UNK
     Route: 065
     Dates: end: 20231116

REACTIONS (3)
  - Metastases to central nervous system [Unknown]
  - Disease progression [Unknown]
  - Headache [Recovering/Resolving]
